FAERS Safety Report 22011263 (Version 2)
Quarter: 2023Q1

REPORT INFORMATION
  Report Type: Spontaneous
  Country: FR (occurrence: FR)
  Receive Date: 20230220
  Receipt Date: 20230222
  Transmission Date: 20230418
  Serious: Yes (Hospitalization, Other)
  Sender: FDA-Public Use
  Company Number: None

PATIENT
  Age: 14 Year
  Sex: Female
  Weight: 95 kg

DRUGS (5)
  1. ACYCLOVIR [Suspect]
     Active Substance: ACYCLOVIR
     Indication: Product used for unknown indication
     Dosage: 6 DOSAGE FORM, 1 TOTAL
     Route: 048
     Dates: start: 20230110, end: 20230110
  2. DOLIPRANE [Suspect]
     Active Substance: ACETAMINOPHEN
     Indication: Product used for unknown indication
     Dosage: 5 GRAM, 1 TOTAL
     Route: 048
     Dates: start: 20230110, end: 20230110
  3. CYAMEMAZINE [Suspect]
     Active Substance: CYAMEMAZINE
     Indication: Product used for unknown indication
     Dosage: 375 MILLIGRAM, 1 TOTAL
     Route: 048
     Dates: start: 20230110, end: 20230110
  4. EBASTINE [Suspect]
     Active Substance: EBASTINE
     Indication: Product used for unknown indication
     Dosage: 90 MILLIGRAM, QD/ 1 TOTAL
     Route: 048
     Dates: start: 20230110, end: 20230110
  5. RACECADOTRIL [Suspect]
     Active Substance: RACECADOTRIL
     Indication: Product used for unknown indication
     Dosage: 500 MILLIGRAM, QD/ 1 TOTAL
     Route: 048
     Dates: start: 20230110, end: 20230110

REACTIONS (4)
  - Decreased appetite [Recovered/Resolved]
  - Dizziness [Recovered/Resolved]
  - Somnolence [Recovered/Resolved]
  - Poisoning deliberate [Unknown]

NARRATIVE: CASE EVENT DATE: 20230110
